FAERS Safety Report 8218811-3 (Version None)
Quarter: 2012Q1

REPORT INFORMATION
  Report Type: 
  Country: None (occurrence: None)
  Receive Date: 20120319
  Receipt Date: 20120314
  Transmission Date: 20120608
  Serious: Yes (Death, Hospitalization)
  Sender: FDA-Public Use
  Company Number: PHHY2012NI022760

PATIENT
  Age: 81 Year
  Sex: Male

DRUGS (2)
  1. EXELON [Suspect]
     Dosage: 6 MG DAILY
     Route: 048
  2. EXELON [Suspect]
     Indication: DEMENTIA ALZHEIMER'S TYPE
     Dosage: 4.5 MG DAILY
     Route: 048

REACTIONS (2)
  - SEPSIS [None]
  - DECUBITUS ULCER [None]
